FAERS Safety Report 4919143-9 (Version None)
Quarter: 2006Q1

REPORT INFORMATION
  Report Type: 
  Country: None (occurrence: None)
  Receive Date: 20060216
  Receipt Date: 20060206
  Transmission Date: 20060701
  Serious: Yes (Hospitalization)
  Sender: FDA-Public Use
  Company Number: 2005148678

PATIENT
  Age: 58 Year
  Sex: Female
  Weight: 57.2 kg

DRUGS (14)
  1. SU-011, 248  (SU-011,248) [Suspect]
     Indication: RENAL CELL CARCINOMA STAGE UNSPECIFIED
     Dosage: 50 MG (50 MG, 1 IN 1 D), ORAL
     Route: 048
     Dates: start: 20050722, end: 20051023
  2. SYNTHROID (LEVOTHYROXINE SOIDUM) [Concomitant]
  3. LORAZEPAM [Concomitant]
  4. LIDOCAINE [Concomitant]
  5. XYLOCAINE [Concomitant]
  6. ANUSOL [Concomitant]
  7. COMPAZINE [Concomitant]
  8. KYTRIL [Concomitant]
  9. SENNA (SENNA) [Concomitant]
  10. TYLENOL PM (DIPHENHYDRAMINE, PARACETAMOL) [Concomitant]
  11. PEPCID [Concomitant]
  12. DARVOCET-N 100 [Concomitant]
  13. NORVASC [Concomitant]
  14. NASACORT AQ (TRIAMCINOLONE ACETONIDE) [Concomitant]

REACTIONS (4)
  - ABDOMINAL ABSCESS [None]
  - MYALGIA [None]
  - NAUSEA [None]
  - VOMITING [None]
